FAERS Safety Report 10731027 (Version 2)
Quarter: 2017Q3

REPORT INFORMATION
  Report Type: Spontaneous
  Country: US (occurrence: US)
  Receive Date: 20150122
  Receipt Date: 20170816
  Transmission Date: 20171127
  Serious: Yes (Death, Other)
  Sender: FDA-Public Use
  Company Number: US-PFIZER INC-2014106319

PATIENT
  Age: 63 Year
  Sex: Male
  Weight: 86 kg

DRUGS (22)
  1. OXYCODONE [Concomitant]
     Active Substance: OXYCODONE
     Dosage: 20 MG, AS NEEDED
  2. VALACYCLOVIR [Concomitant]
     Active Substance: VALACYCLOVIR HYDROCHLORIDE
     Dosage: 450 MG, DAILY
     Route: 048
  3. EFUDEX [Concomitant]
     Active Substance: FLUOROURACIL
     Dosage: UNK
  4. NORVASC [Concomitant]
     Active Substance: AMLODIPINE BESYLATE
     Dosage: 10 MG, 1X/DAY
     Route: 048
  5. FLOMAX RELIEF [Concomitant]
     Active Substance: TAMSULOSIN HYDROCHLORIDE
     Dosage: 0.4 MG, 1X/DAY
     Route: 048
  6. LASIX [Concomitant]
     Active Substance: FUROSEMIDE
     Dosage: 20 MG, DAILY
     Route: 048
  7. SOLU-MEDROL [Concomitant]
     Active Substance: METHYLPREDNISOLONE SODIUM SUCCINATE
     Dosage: UNK
     Route: 042
  8. THERAGRAN [Concomitant]
     Active Substance: VITAMINS
     Dosage: UNK UNK, DAILY (TAKE 1 TABLET)
     Route: 048
  9. DELTASONE [Concomitant]
     Active Substance: PREDNISONE
     Dosage: 40 MG, DAILY
  10. LOMOTIL [Concomitant]
     Active Substance: ATROPINE SULFATE\DIPHENOXYLATE HYDROCHLORIDE
     Dosage: UNK, 4X/DAY (ATROPINE SULFATE-25MG, DIPHENOXYLATE HYDROCHLORIDE-2.5MG)
     Route: 048
  11. SODIUM BICARBONATE. [Concomitant]
     Active Substance: SODIUM BICARBONATE
     Dosage: 650 MG, 2X/DAY
  12. PRILOSEC [Concomitant]
     Active Substance: OMEPRAZOLE MAGNESIUM
     Dosage: 20 MG, DAILY
     Route: 048
  13. RAPAMUNE [Suspect]
     Active Substance: SIROLIMUS
     Dosage: 11 MG, DAILY (1 MG TABLET)
     Route: 048
  14. VALCYTE [Concomitant]
     Active Substance: VALGANCICLOVIR HYDROCHLORIDE
     Dosage: 450 MG, DAILY
     Route: 048
  15. COUMADINE [Concomitant]
     Active Substance: WARFARIN SODIUM
     Dosage: 5 MG 4 TIMES A WEEK, 10 MG 3 DAYS A WEEK,
     Route: 048
  16. CALCIUM CARBONATE. [Concomitant]
     Active Substance: CALCIUM CARBONATE
     Dosage: 1625 MG, 2X/DAY
     Route: 048
  17. FERROUS SULFATE. [Concomitant]
     Active Substance: FERROUS SULFATE
     Dosage: 325 MG, 3X/DAY (WITH MEALS)
  18. DIFLUCAN [Concomitant]
     Active Substance: FLUCONAZOLE
  19. ASPIRIN. [Concomitant]
     Active Substance: ASPIRIN
     Dosage: 81 MG, 1X/DAY (81 MG EC TABLET)
     Route: 048
  20. COUMADINE [Concomitant]
     Active Substance: WARFARIN SODIUM
     Dosage: 10 UNK, UNK (TAKE 10 MG THURSDAY,SATURDAY AND TUESDAY)
  21. MYFORTIC [Suspect]
     Active Substance: MYCOPHENOLATE SODIUM
     Dosage: UNK, 2X/DAY
     Route: 048
  22. COUMADINE [Concomitant]
     Active Substance: WARFARIN SODIUM
     Dosage: 7.5 UNK, UNK (7.5 MG ON THE OTHER DAYS)

REACTIONS (4)
  - Liver transplant rejection [Unknown]
  - Product use in unapproved indication [Unknown]
  - Death [Fatal]
  - Drug level fluctuating [Unknown]

NARRATIVE: CASE EVENT DATE: 201706
